FAERS Safety Report 8320071-X (Version None)
Quarter: 2012Q2

REPORT INFORMATION
  Report Type: 
  Country: None (occurrence: None)
  Receive Date: 20120428
  Receipt Date: 20120424
  Transmission Date: 20120825
  Serious: Yes (Other)
  Sender: FDA-Public Use
  Company Number: US-ACCORD-013273

PATIENT
  Age: 3 Year
  Sex: Female

DRUGS (3)
  1. CARBOPLATIN [Suspect]
     Indication: RETINOBLASTOMA BILATERAL
     Dosage: 6 COURSES
     Dates: start: 20080901
  2. ETOPOSIDE [Suspect]
     Indication: RETINOBLASTOMA BILATERAL
     Dosage: 6 COURSES
     Dates: start: 20080901
  3. VINCRISTINE [Suspect]
     Indication: RETINOBLASTOMA BILATERAL
     Dosage: 6 COURSES
     Dates: start: 20080901

REACTIONS (2)
  - OFF LABEL USE [None]
  - TREATMENT FAILURE [None]
